FAERS Safety Report 8344897 (Version 3)
Quarter: 2013Q4

REPORT INFORMATION
  Report Type: Spontaneous
  Country: US (occurrence: US)
  Receive Date: 20120120
  Receipt Date: 20131217
  Transmission Date: 20140711
  Serious: Yes (Hospitalization, Other)
  Sender: FDA-Public Use
  Company Number: US-PFIZER INC-2012013168

PATIENT
  Age: 51 Year
  Sex: Female

DRUGS (9)
  1. DILANTIN [Suspect]
     Indication: CONVULSION
     Dosage: 480 MG, 1X/DAY (EVERY DAY AFTERNOON)
     Dates: start: 20100208
  2. DILANTIN [Suspect]
     Indication: CEREBROVASCULAR ACCIDENT PROPHYLAXIS
  3. SOTALOL [Concomitant]
     Dosage: 80 MG, UNK
     Dates: start: 20100125
  4. LIPITOR [Concomitant]
     Dosage: 80 MG, UNK
     Dates: start: 20100204
  5. AMOXICILLIN [Concomitant]
     Dosage: 500 MG, UNK
     Dates: start: 20100204
  6. NEXIUM [Concomitant]
     Dosage: 40 MG DAILY
     Dates: start: 20100208
  7. ALBUTEROL [Concomitant]
     Dosage: 5 MG EVERY HOUR
     Dates: start: 20100208
  8. ATROVENT [Concomitant]
     Dosage: 0.5 MG, 4X/DAY (EVERY 6 HOURS)
     Dates: start: 20100208
  9. FENTANYL [Concomitant]
     Dosage: 25 MG, UNK
     Dates: start: 20100208

REACTIONS (1)
  - Stevens-Johnson syndrome [Recovering/Resolving]
